FAERS Safety Report 8876914 (Version 1)
Quarter: 2012Q4

REPORT INFORMATION
  Report Type: Report from Study
  Country: US (occurrence: US)
  Receive Date: 20121029
  Receipt Date: 20121029
  Transmission Date: 20130627
  Serious: Yes (Death)
  Sender: FDA-Public Use
  Company Number: US-SANOFI-AVENTIS-2012SA078318

PATIENT

DRUGS (5)
  1. FLUOROURACIL [Suspect]
     Indication: COLON CANCER
     Dosage: day 1
     Route: 040
  2. FLUOROURACIL [Suspect]
     Indication: COLON CANCER
     Dosage: continuous infusional fluorouracil administered over 46 hours starting on day 1
     Route: 065
  3. OXALIPLATIN [Suspect]
     Indication: COLON CANCER
     Dosage: day 1
     Route: 065
  4. LEUCOVORIN [Suspect]
     Indication: COLON CANCER
     Dosage: day 1
     Route: 065
  5. BEVACIZUMAB [Suspect]
     Indication: COLON CANCER
     Dosage: administered on day 1
     Route: 065

REACTIONS (1)
  - Diarrhoea [Fatal]
